FAERS Safety Report 12649581 (Version 1)
Quarter: 2016Q3

REPORT INFORMATION
  Report Type: Spontaneous
  Country: US (occurrence: US)
  Receive Date: 20160812
  Receipt Date: 20160812
  Transmission Date: 20161109
  Serious: Yes (Hospitalization)
  Sender: FDA-Public Use
  Company Number: US-SA-2016SA144230

PATIENT
  Age: 38 Year
  Sex: Female

DRUGS (3)
  1. ACTHAR [Concomitant]
     Active Substance: CORTICOTROPIN
  2. LEMTRADA [Suspect]
     Active Substance: ALEMTUZUMAB
     Route: 041
  3. METHYLPREDNISOLONE. [Concomitant]
     Active Substance: METHYLPREDNISOLONE

REACTIONS (4)
  - Hyperhidrosis [Unknown]
  - Hypotension [Unknown]
  - Blood creatinine increased [Unknown]
  - Haemoptysis [Unknown]
